FAERS Safety Report 7086179-4 (Version None)
Quarter: 2010Q4

REPORT INFORMATION
  Report Type: 
  Country: None (occurrence: None)
  Receive Date: 20101105
  Receipt Date: 20101026
  Transmission Date: 20110411
  Serious: Yes (Other)
  Sender: FDA-Public Use
  Company Number: DK-JNJFOC-20101007423

PATIENT
  Sex: Female

DRUGS (3)
  1. REMICADE [Suspect]
     Indication: RHEUMATOID ARTHRITIS
     Route: 042
  2. REMICADE [Suspect]
     Dosage: 0,2,6,8 WEEK
     Route: 042
  3. METHOTREXATE [Concomitant]
     Route: 048

REACTIONS (2)
  - DYSPNOEA [None]
  - FEELING HOT [None]
